FAERS Safety Report 6510231-2 (Version None)
Quarter: 2009Q4

REPORT INFORMATION
  Report Type: 
  Country: None (occurrence: None)
  Receive Date: 20091221
  Receipt Date: 20091221
  Transmission Date: 20100525
  Serious: Yes (Hospitalization)
  Sender: FDA-Public Use
  Company Number: None

PATIENT
  Sex: Female
  Weight: 96 kg

DRUGS (3)
  1. CARBOPLATIN [Suspect]
     Dosage: 930 MG
     Dates: end: 20091125
  2. LEUKINE [Suspect]
     Dosage: 300 MG
     Dates: end: 20091210
  3. PACLITAXEL [Suspect]
     Dosage: 160 MG
     Dates: end: 20091202

REACTIONS (3)
  - CHILLS [None]
  - DEVICE RELATED INFECTION [None]
  - PAIN [None]
